FAERS Safety Report 8422234-1 (Version None)
Quarter: 2012Q2

REPORT INFORMATION
  Report Type: 
  Country: None (occurrence: None)
  Receive Date: 20120608
  Receipt Date: 20120530
  Transmission Date: 20120825
  Serious: Yes (Hospitalization)
  Sender: FDA-Public Use
  Company Number: JP-SANOFI-AVENTIS-2012SA037135

PATIENT
  Age: 80 Year
  Sex: Male
  Weight: 48 kg

DRUGS (7)
  1. OXALIPLATIN [Suspect]
     Indication: GASTRIC CANCER
     Route: 041
     Dates: start: 20110905, end: 20110926
  2. AMINOHIPPURATE SODIUM/GIMERACIL/TEGAFUR [Suspect]
     Route: 048
     Dates: start: 20120302
  3. OXALIPLATIN [Suspect]
     Route: 041
     Dates: start: 20111031, end: 20120127
  4. OXALIPLATIN [Suspect]
     Route: 041
     Dates: start: 20120302, end: 20120511
  5. AMINOHIPPURATE SODIUM/GIMERACIL/TEGAFUR [Suspect]
     Indication: GASTRIC CANCER
     Route: 048
     Dates: start: 20110905
  6. AMINOHIPPURATE SODIUM/GIMERACIL/TEGAFUR [Suspect]
     Route: 048
     Dates: start: 20110926
  7. AMINOHIPPURATE SODIUM/GIMERACIL/TEGAFUR [Suspect]
     Route: 048
     Dates: start: 20120518

REACTIONS (1)
  - HYDRONEPHROSIS [None]
